FAERS Safety Report 4301169-X (Version None)
Quarter: 2004Q1

REPORT INFORMATION
  Report Type: 
  Country: None (occurrence: None)
  Receive Date: 20040218
  Receipt Date: 20031024
  Transmission Date: 20041129
  Serious: No
  Sender: FDA-Public Use
  Company Number: 2003-10-2678

PATIENT
  Sex: Male

DRUGS (1)
  1. PEG-INTRON [Suspect]
     Dosage: UNKOWN SUBCUTANEOUS

REACTIONS (1)
  - HEADACHE [None]
